FAERS Safety Report 10152576 (Version 7)
Quarter: 2014Q4

REPORT INFORMATION
  Report Type: Report from Study
  Country: US (occurrence: US)
  Receive Date: 20140505
  Receipt Date: 20141001
  Transmission Date: 20150528
  Serious: Yes (Hospitalization, Other)
  Sender: FDA-Public Use
  Company Number: US-ACTELION-A-US2014-98191

PATIENT
  Age: 71 Year
  Sex: Female

DRUGS (2)
  1. COUMADIN [Concomitant]
     Active Substance: WARFARIN SODIUM
  2. TRACLEER [Suspect]
     Active Substance: BOSENTAN\BOSENTAN MONOHYDRATE
     Indication: PULMONARY ARTERIAL HYPERTENSION
     Dosage: UNK
     Route: 048

REACTIONS (8)
  - Ankle fracture [Unknown]
  - Abnormal loss of weight [Unknown]
  - Accident [Unknown]
  - Fall [Unknown]
  - Tooth disorder [Unknown]
  - Upper limb fracture [Unknown]
  - Limb discomfort [Unknown]
  - Dyspnoea [Unknown]
